FAERS Safety Report 5814005-7 (Version None)
Quarter: 2008Q3

REPORT INFORMATION
  Report Type: 
  Country: None (occurrence: None)
  Receive Date: 20080717
  Receipt Date: 20080707
  Transmission Date: 20090109
  Serious: Yes (Other)
  Sender: FDA-Public Use
  Company Number: AT-ABBOTT-08P-009-0461850-00

PATIENT
  Sex: Male
  Weight: 100 kg

DRUGS (9)
  1. HUMIRA [Suspect]
     Indication: COLITIS ULCERATIVE
     Route: 058
     Dates: start: 20080609, end: 20080609
  2. HUMIRA [Suspect]
     Route: 058
  3. BLOPRESS PLUS [Concomitant]
     Indication: HYPERTONIA
     Dosage: 0.5 X 16 MG/1 X DAILY
     Route: 048
  4. ATENOLOL [Concomitant]
     Indication: HYPERTONIA
     Route: 048
  5. POTASSIUM CHLORIDE [Concomitant]
     Indication: DIARRHOEA
     Route: 048
  6. PANTOPRAZOLE SODIUM [Concomitant]
     Indication: GASTRITIS
     Route: 048
  7. AZATHIOPRINE [Concomitant]
     Indication: COLITIS ULCERATIVE
     Route: 048
  8. DULOXETINE HYDROCHLORIDE [Concomitant]
     Indication: DEPRESSION
     Route: 048
  9. MIRTAZAPINE [Concomitant]
     Indication: DEPRESSION
     Dosage: 0.25 X 30 MG/1X DAILY
     Route: 048

REACTIONS (1)
  - BLOOD GLUCOSE INCREASED [None]
